FAERS Safety Report 5483913-1 (Version None)
Quarter: 2007Q4

REPORT INFORMATION
  Report Type: 
  Country: None (occurrence: None)
  Receive Date: 20071012
  Receipt Date: 20071003
  Transmission Date: 20080405
  Serious: Yes (Hospitalization)
  Sender: FDA-Public Use
  Company Number: GB-BRISTOL-MYERS SQUIBB COMPANY-13866710

PATIENT
  Age: 42 Year
  Sex: Female

DRUGS (2)
  1. CYCLOPHOSPHAMIDE [Suspect]
     Indication: BREAST CANCER
     Route: 042
     Dates: start: 20070709, end: 20070709
  2. DOXORUBICIN HCL [Concomitant]
     Indication: BREAST CANCER
     Dosage: THE PATIENT RECEIVED 126MG/60MG/M2 ONCE IN 3WEEKS.
     Route: 042
     Dates: start: 20070709, end: 20070709

REACTIONS (1)
  - GASTRITIS [None]
